FAERS Safety Report 13364459 (Version 1)
Quarter: 2017Q1

REPORT INFORMATION
  Report Type: Spontaneous
  Country: US (occurrence: US)
  Receive Date: 20170323
  Receipt Date: 20170323
  Transmission Date: 20170429
  Serious: No
  Sender: FDA-Public Use
  Company Number: US-ROCHE-1356774

PATIENT
  Age: 58 Year
  Sex: Female

DRUGS (6)
  1. OMEPRAZOLE. [Concomitant]
     Active Substance: OMEPRAZOLE
  2. XOLAIR [Suspect]
     Active Substance: OMALIZUMAB
     Indication: ASTHMA
     Dosage: 6 INJECTIONS IN A MONTH
     Route: 065
  3. COMBIVENT [Concomitant]
     Active Substance: ALBUTEROL SULFATE\IPRATROPIUM BROMIDE
  4. METAMUCIL [Concomitant]
     Active Substance: PLANTAGO SEED
  5. FORADIL [Concomitant]
     Active Substance: FORMOTEROL FUMARATE
  6. ASMANEX [Concomitant]
     Active Substance: MOMETASONE FUROATE

REACTIONS (2)
  - Asthma [Unknown]
  - Malaise [Unknown]

NARRATIVE: CASE EVENT DATE: 201401
